FAERS Safety Report 12963296 (Version 2)
Quarter: 2016Q4

REPORT INFORMATION
  Report Type: Spontaneous
  Country: JP (occurrence: JP)
  Receive Date: 20161122
  Receipt Date: 20161207
  Transmission Date: 20170207
  Serious: Yes (Other)
  Sender: FDA-Public Use
  Company Number: JP-CONCORDIA PHARMACEUTICALS INC.-GSH201611-005889

PATIENT
  Age: 64 Year
  Sex: Male

DRUGS (1)
  1. POLYSTYRENE SULFONATE [Suspect]
     Active Substance: POLYSTYRENE SULFONIC ACID
     Indication: HYPERKALAEMIA
     Route: 065

REACTIONS (1)
  - Rectal ulcer haemorrhage [Unknown]
